FAERS Safety Report 10931829 (Version 1)
Quarter: 2015Q1

REPORT INFORMATION
  Report Type: Spontaneous
  Country: US (occurrence: US)
  Receive Date: 20150319
  Receipt Date: 20150319
  Transmission Date: 20150721
  Serious: No
  Sender: FDA-Public Use
  Company Number: US-GLAXOSMITHKLINE-US2015GSK036749

PATIENT
  Age: 32 Year

DRUGS (1)
  1. FLONASE [Suspect]
     Active Substance: FLUTICASONE PROPIONATE
     Indication: PRODUCT USED FOR UNKNOWN INDICATION
     Dosage: UNK
     Route: 045

REACTIONS (4)
  - Insomnia [Recovered/Resolved]
  - Cardiac disorder [Recovered/Resolved]
  - Palpitations [Recovered/Resolved]
  - Chest discomfort [Recovered/Resolved]
